FAERS Safety Report 5130665-0 (Version None)
Quarter: 2006Q4

REPORT INFORMATION
  Report Type: 
  Country: None (occurrence: None)
  Receive Date: 20061018
  Receipt Date: 20061018
  Transmission Date: 20070319
  Serious: Yes (Hospitalization)
  Sender: FDA-Public Use
  Company Number: None

PATIENT
  Sex: Female
  Weight: 80.4 kg

DRUGS (13)
  1. IRINOTECAN HCL [Suspect]
  2. CELEBREX [Suspect]
  3. OXYCONTIN [Concomitant]
  4. COMPAZINE [Concomitant]
  5. KYTRIL [Concomitant]
  6. CELEBREX [Concomitant]
  7. SENNA [Concomitant]
  8. COLACE [Concomitant]
  9. REGLAN [Concomitant]
  10. ZOFRAN [Concomitant]
  11. CIPRO [Concomitant]
  12. ZANTAC [Concomitant]
  13. MIRALAX [Concomitant]

REACTIONS (6)
  - ABDOMINAL PAIN UPPER [None]
  - ANOREXIA [None]
  - CONSTIPATION [None]
  - CYTOMEGALOVIRUS INFECTION [None]
  - NAUSEA [None]
  - VOMITING [None]
